FAERS Safety Report 4869799-4 (Version None)
Quarter: 2005Q4

REPORT INFORMATION
  Report Type: 
  Country: None (occurrence: None)
  Receive Date: 20051223
  Receipt Date: 20051205
  Transmission Date: 20060501
  Serious: Yes (Death, Other)
  Sender: FDA-Public Use
  Company Number: US-000541347

PATIENT
  Age: 85 Year
  Sex: Female
  Weight: 50 kg

DRUGS (2)
  1. EVISTA [Suspect]
     Dosage: ORAL
     Route: 048
     Dates: start: 19980101
  2. HORMONE REPLACEMENT THERAPY (HORMONE REPLACEMENT THERAPY) [Concomitant]

REACTIONS (5)
  - CEREBRAL THROMBOSIS [None]
  - HYPOAESTHESIA [None]
  - OEDEMA PERIPHERAL [None]
  - THROMBOSIS [None]
  - TRANSIENT ISCHAEMIC ATTACK [None]
